FAERS Safety Report 20332459 (Version 1)
Quarter: 2022Q1

REPORT INFORMATION
  Report Type: Spontaneous
  Country: US (occurrence: US)
  Receive Date: 20220113
  Receipt Date: 20220113
  Transmission Date: 20220424
  Serious: Yes (Other)
  Sender: FDA-Public Use
  Company Number: US-PFIZER INC-202200004642

PATIENT
  Age: 75 Year
  Sex: Male

DRUGS (1)
  1. INLYTA [Suspect]
     Active Substance: AXITINIB
     Dosage: 1 MG, UNK

REACTIONS (6)
  - Hypothyroidism [Unknown]
  - Fatigue [Unknown]
  - Nausea [Unknown]
  - Adrenal mass [Unknown]
  - Renal mass [Unknown]
  - Neoplasm progression [Unknown]
